FAERS Safety Report 5741509-8 (Version None)
Quarter: 2008Q2

REPORT INFORMATION
  Report Type: 
  Country: None (occurrence: None)
  Receive Date: 20080519
  Receipt Date: 20080313
  Transmission Date: 20081010
  Serious: No
  Sender: FDA-Public Use
  Company Number: US-BAYER-200817446NA

PATIENT
  Age: 29 Year
  Sex: Male

DRUGS (1)
  1. ULTRAVIST 370 [Suspect]
     Indication: ANGIOGRAM
     Route: 042
     Dates: start: 20080311, end: 20080311

REACTIONS (1)
  - URTICARIA [None]
